FAERS Safety Report 6161410-8 (Version None)
Quarter: 2009Q2

REPORT INFORMATION
  Report Type: 
  Country: None (occurrence: None)
  Receive Date: 20090421
  Receipt Date: 20070523
  Transmission Date: 20091009
  Serious: Yes (Hospitalization, Other)
  Sender: FDA-Public Use
  Company Number: US-ASTRAZENECA-2006UW17482

PATIENT
  Age: 15670 Day
  Sex: Female
  Weight: 132.2 kg

DRUGS (22)
  1. SEROQUEL [Suspect]
     Indication: BIPOLAR DISORDER
     Route: 048
     Dates: start: 19970101, end: 20000101
  2. SEROQUEL [Suspect]
     Indication: DEPRESSION
     Route: 048
     Dates: start: 19970101, end: 20000101
  3. SEROQUEL [Suspect]
     Dosage: 300 MG AND 50 MG
     Route: 048
     Dates: start: 20010501
  4. SEROQUEL [Suspect]
     Dosage: 300 MG AND 50 MG
     Route: 048
     Dates: start: 20010501
  5. SEROQUEL [Suspect]
     Dosage: 25-600 MG
     Route: 048
  6. SEROQUEL [Suspect]
     Dosage: 25-600 MG
     Route: 048
  7. LEXAPRO [Concomitant]
  8. LEVOXYL [Concomitant]
  9. GEMFIBROZIL [Concomitant]
  10. LISINOPRIL [Concomitant]
  11. METFORMIN HCL [Concomitant]
  12. METOPROLOL SUCCINATE [Concomitant]
  13. ACTOS [Concomitant]
  14. ABILIFY [Concomitant]
  15. CLONAZEPAM [Concomitant]
  16. PRAVACHOL [Concomitant]
  17. PREDNISONE [Concomitant]
  18. ZYRTEC [Concomitant]
  19. TRICOR [Concomitant]
  20. CELEXA [Concomitant]
  21. RISPERDAL [Concomitant]
  22. TRAMADOL [Concomitant]

REACTIONS (23)
  - ANAEMIA [None]
  - ASTHENIA [None]
  - BACK PAIN [None]
  - BIPOLAR DISORDER [None]
  - CHRONIC OBSTRUCTIVE PULMONARY DISEASE [None]
  - DEAFNESS [None]
  - DECUBITUS ULCER [None]
  - DIABETES MELLITUS [None]
  - DYSPNOEA EXERTIONAL [None]
  - DYSPNOEA PAROXYSMAL NOCTURNAL [None]
  - ESSENTIAL HYPERTENSION [None]
  - EUSTACHIAN TUBE DYSFUNCTION [None]
  - FATIGUE [None]
  - HYPERCHOLESTEROLAEMIA [None]
  - INGROWING NAIL [None]
  - NASAL SEPTUM DEVIATION [None]
  - OEDEMA PERIPHERAL [None]
  - ORTHOPNOEA [None]
  - PNEUMONIA [None]
  - RHINITIS ALLERGIC [None]
  - SMOKING CESSATION THERAPY [None]
  - TYPE 2 DIABETES MELLITUS [None]
  - WEIGHT INCREASED [None]
